FAERS Safety Report 12726174 (Version 1)
Quarter: 2016Q3

REPORT INFORMATION
  Report Type: Other
  Country: US (occurrence: US)
  Receive Date: 20160908
  Receipt Date: 20160908
  Transmission Date: 20161109
  Serious: No
  Sender: FDA-Public Use
  Company Number: US-COL_21099_2015

PATIENT
  Sex: Female

DRUGS (2)
  1. COLGATE TOTAL WHITENING GEL [Suspect]
     Active Substance: SODIUM FLUORIDE\TRICLOSAN
     Indication: PRODUCT USED FOR UNKNOWN INDICATION
     Dosage: A SMALL AMOUNT AROUND A PEA SIZE/ OD/
     Route: 048
     Dates: start: 1950
  2. COLGATE TOTAL WHITENING GEL [Suspect]
     Active Substance: SODIUM FLUORIDE\TRICLOSAN
     Dosage: NI/ NI/
     Route: 048

REACTIONS (1)
  - Lip exfoliation [Recovered/Resolved]
